FAERS Safety Report 7717004-3 (Version None)
Quarter: 2011Q3

REPORT INFORMATION
  Report Type: 
  Country: None (occurrence: None)
  Receive Date: 20110829
  Receipt Date: 20110823
  Transmission Date: 20111222
  Serious: Yes (Other)
  Sender: FDA-Public Use
  Company Number: US-SANOFI-AVENTIS-2011SA054225

PATIENT
  Sex: Female

DRUGS (2)
  1. PLAVIX [Suspect]
     Route: 065
  2. ATORVASTATIN [Suspect]
     Route: 065

REACTIONS (2)
  - OESOPHAGEAL ULCER [None]
  - DYSPHAGIA [None]
